FAERS Safety Report 14732034 (Version 1)
Quarter: 2018Q2

REPORT INFORMATION
  Report Type: Spontaneous
  Country: US (occurrence: US)
  Receive Date: 20180408
  Receipt Date: 20180408
  Transmission Date: 20180711
  Serious: Yes (Other)
  Sender: FDA-Public Use
  Company Number: US-MYLANLABS-2018M1018730

PATIENT
  Sex: Male
  Weight: 77.55 kg

DRUGS (1)
  1. MUSE [Suspect]
     Active Substance: ALPROSTADIL
     Indication: ERECTILE DYSFUNCTION
     Dosage: 1000 ?G, PRN
     Route: 066
     Dates: start: 2017

REACTIONS (4)
  - Product packaging issue [Unknown]
  - Urethral haemorrhage [Recovered/Resolved]
  - Gastrointestinal motility disorder [Recovered/Resolved]
  - Pain in extremity [Recovered/Resolved]

NARRATIVE: CASE EVENT DATE: 2017
